FAERS Safety Report 11264763 (Version 1)
Quarter: 2015Q3

REPORT INFORMATION
  Report Type: Spontaneous
  Country: IT (occurrence: None)
  Receive Date: 20150709
  Receipt Date: 20150709
  Transmission Date: 20151125
  Serious: Yes (Hospitalization)
  Sender: FDA-Public Use
  Company Number: NL01PV15_39266

PATIENT
  Age: 49 Year
  Sex: Female

DRUGS (4)
  1. DELORAZEPAM (DELORAZEPAM) [Suspect]
     Active Substance: DELORAZEPAM
     Indication: PRODUCT USED FOR UNKNOWN INDICATION
     Route: 048
     Dates: start: 20150503, end: 20150503
  2. ZOLPIDEM [Suspect]
     Active Substance: ZOLPIDEM\ZOLPIDEM TARTRATE
     Indication: PRODUCT USED FOR UNKNOWN INDICATION
     Route: 048
     Dates: start: 20150503, end: 20150503
  3. LORMETAZEPAM (LORMETAZEPAM) [Suspect]
     Active Substance: LORMETAZEPAM
     Indication: PRODUCT USED FOR UNKNOWN INDICATION
     Route: 048
     Dates: start: 20150503, end: 20150503
  4. TRIAZOLAM (TRIAZOLAM) [Suspect]
     Active Substance: TRIAZOLAM
     Indication: PRODUCT USED FOR UNKNOWN INDICATION
     Route: 048
     Dates: start: 20150503, end: 20150503

REACTIONS (3)
  - Poisoning [None]
  - Intentional self-injury [None]
  - Sopor [None]

NARRATIVE: CASE EVENT DATE: 20150503
